FAERS Safety Report 19163826 (Version 1)
Quarter: 2021Q2

REPORT INFORMATION
  Report Type: Report from Study
  Country: GB (occurrence: GB)
  Receive Date: 20210421
  Receipt Date: 20210421
  Transmission Date: 20210717
  Serious: Yes (Hospitalization)
  Sender: FDA-Public Use
  Company Number: GB-MYLANLABS-2021M1023228

PATIENT
  Age: 54 Year
  Sex: Female

DRUGS (49)
  1. CITALOPRAM [Concomitant]
     Active Substance: CITALOPRAM HYDROBROMIDE
     Dosage: 40 MILLIGRAM
     Route: 048
     Dates: start: 2005
  2. CODEINE [Concomitant]
     Active Substance: CODEINE
     Dosage: 30 MILLIGRAM
     Route: 048
     Dates: start: 201504
  3. MEROPENEM. [Concomitant]
     Active Substance: MEROPENEM
     Indication: PYREXIA
     Dosage: 1 GRAM
     Route: 042
     Dates: start: 20190205
  4. MEROPENEM. [Concomitant]
     Active Substance: MEROPENEM
     Dosage: 1 GRAM
     Route: 042
     Dates: start: 20181222, end: 20181227
  5. PROMETHAZINE HYDROCHLORIDE. [Concomitant]
     Active Substance: PROMETHAZINE HYDROCHLORIDE
     Dosage: 25 MILLIGRAM, QD
     Route: 048
  6. CYCLIZINE [Concomitant]
     Active Substance: CYCLIZINE
     Dosage: 50 MILLIGRAM, Q3D
     Route: 048
     Dates: start: 201507
  7. DEXAMETHASONE. [Concomitant]
     Active Substance: DEXAMETHASONE
     Dosage: 4 MILLIGRAM, BID
     Route: 048
     Dates: start: 20151020, end: 20151103
  8. DEXAMETHASONE. [Concomitant]
     Active Substance: DEXAMETHASONE
     Dosage: 1 MILLIGRAM
     Route: 048
     Dates: start: 20151125, end: 20151202
  9. FLUCLOXACILLIN [Concomitant]
     Active Substance: FLUCLOXACILLIN
     Dosage: 500 MILLIGRAM, Q4D
     Route: 048
     Dates: start: 20161110, end: 20161117
  10. FLUCLOXACILLIN [Concomitant]
     Active Substance: FLUCLOXACILLIN
     Dosage: UNK
     Route: 048
     Dates: start: 20180910, end: 20180912
  11. LANSOPRAZOLE. [Concomitant]
     Active Substance: LANSOPRAZOLE
     Dosage: 15 MILLIGRAM, QD
     Route: 048
     Dates: start: 2001
  12. LINEZOLID. [Concomitant]
     Active Substance: LINEZOLID
     Indication: PYREXIA
     Dosage: UNK
     Route: 048
     Dates: start: 20181223, end: 20181227
  13. METRONIDAZOLE. [Concomitant]
     Active Substance: METRONIDAZOLE
     Dosage: UNK
     Route: 048
     Dates: start: 20170701, end: 20170708
  14. EXEMESTANE. [Suspect]
     Active Substance: EXEMESTANE
     Indication: BREAST CANCER METASTATIC
     Dosage: 25 MILLIGRAM, QD
     Route: 048
     Dates: start: 20170428, end: 20180110
  15. DEXAMETHASONE. [Concomitant]
     Active Substance: DEXAMETHASONE
     Dosage: 1 MILLIGRAM, BID
     Route: 048
     Dates: start: 20151118, end: 20151124
  16. DOXYCYCLINE. [Concomitant]
     Active Substance: DOXYCYCLINE
     Dosage: 100 MILLIGRAM, QD
     Route: 048
     Dates: start: 20180815
  17. HYOSCINE BUTYLBROMIDE [Concomitant]
     Active Substance: BUTYLSCOPOLAMINE BROMIDE
     Indication: NAUSEA
     Dosage: 10 MILLIGRAM, TID
     Route: 048
     Dates: start: 20181222
  18. LETROZOLE. [Concomitant]
     Active Substance: LETROZOLE
     Indication: BREAST CANCER METASTATIC
     Dosage: 2.5 MILLIGRAM, QD
     Route: 048
     Dates: start: 20150707
  19. MORPHINE SULPHATE [Concomitant]
     Active Substance: MORPHINE SULFATE
     Dosage: 60 MILLIGRAM
     Route: 048
     Dates: start: 201504, end: 20160516
  20. MORPHINE SULPHATE [Concomitant]
     Active Substance: MORPHINE SULFATE
     Dosage: 30 MILLIGRAM
     Route: 048
     Dates: start: 201611
  21. TEICOPLANIN [Concomitant]
     Active Substance: TEICOPLANIN
     Dosage: 600 MILLIGRAM, BID
     Route: 042
     Dates: start: 20181019, end: 20181025
  22. DENOSUMAB [Concomitant]
     Active Substance: DENOSUMAB
     Indication: METASTASES TO BONE
     Dosage: 120 MILLIGRAM
     Route: 058
     Dates: start: 20180118
  23. DENOSUMAB [Concomitant]
     Active Substance: DENOSUMAB
     Dosage: 120 MILLIGRAM
     Route: 058
     Dates: start: 20170604, end: 20170613
  24. MORPHINE SULPHATE [Concomitant]
     Active Substance: MORPHINE SULFATE
     Dosage: 30 MILLIGRAM, QD
     Route: 048
     Dates: start: 201504
  25. DOXYCYCLINE. [Concomitant]
     Active Substance: DOXYCYCLINE
     Dosage: 100 MILLIGRAM, BID
     Route: 048
     Dates: start: 20180813, end: 20180814
  26. DIAZEPAM. [Concomitant]
     Active Substance: DIAZEPAM
     Indication: MUSCULOSKELETAL STIFFNESS
     Dosage: UNK
  27. FLUCLOXACILLIN [Concomitant]
     Active Substance: FLUCLOXACILLIN
     Dosage: 1.2 GRAM, QID
     Route: 042
     Dates: start: 20180912, end: 20180915
  28. PARACETAMOL [Concomitant]
     Active Substance: ACETAMINOPHEN
     Dosage: 500 MILLIGRAM
     Route: 048
     Dates: start: 201504
  29. ACIDEX                             /01521901/ [Concomitant]
     Active Substance: CALCIUM CARBONATE\SODIUM ALGINATE\SODIUM BICARBONATE
     Dosage: 15 MILLILITER, PRN
     Route: 048
  30. VITAMIN D3 [Concomitant]
     Active Substance: CHOLECALCIFEROL
     Dosage: 400 INTERNATIONAL UNIT, QD
     Route: 048
     Dates: start: 20150827
  31. ZOMORPH [Concomitant]
     Active Substance: MORPHINE SULFATE
     Dosage: 30 MILLIGRAM, QOD
     Route: 048
     Dates: start: 201611
  32. TRASTUZUMAB. [Suspect]
     Active Substance: TRASTUZUMAB
     Indication: BREAST CANCER METASTATIC
     Dosage: 600 MILLIGRAM, MONTHLY
     Route: 058
     Dates: start: 20150716, end: 20171222
  33. ACYCLOVIR                          /00587301/ [Concomitant]
     Active Substance: ACYCLOVIR
     Dosage: 800 MILLIGRAM
     Route: 048
     Dates: start: 20160727, end: 20160807
  34. COTRIMOXAZOLE [Concomitant]
     Active Substance: SULFAMETHOXAZOLE\TRIMETHOPRIM
     Dosage: 960 MILLIGRAM
     Route: 048
     Dates: start: 20190206
  35. DEXAMETHASONE. [Concomitant]
     Active Substance: DEXAMETHASONE
     Dosage: 2 MILLIGRAM, BID
     Route: 048
     Dates: start: 20151111, end: 20151117
  36. MEROPENEM. [Concomitant]
     Active Substance: MEROPENEM
     Dosage: 1 GRAM, TID
     Route: 042
     Dates: start: 20180813, end: 20180814
  37. METRONIDAZOLE. [Concomitant]
     Active Substance: METRONIDAZOLE
     Dosage: UNK
     Route: 048
     Dates: start: 20180915, end: 20180921
  38. MORPHINE SULPHATE [Concomitant]
     Active Substance: MORPHINE SULFATE
     Dosage: UNK
     Route: 048
     Dates: start: 20171224
  39. DEXAMETHASONE. [Concomitant]
     Active Substance: DEXAMETHASONE
     Dosage: 4 MILLIGRAM, BID
     Route: 048
     Dates: start: 20151104, end: 20151110
  40. DIAZEPAM. [Concomitant]
     Active Substance: DIAZEPAM
     Indication: BACK PAIN
     Dosage: 2 MILLIGRAM, TID
     Route: 048
     Dates: start: 20180105
  41. GABAPENTIN. [Concomitant]
     Active Substance: GABAPENTIN
     Dosage: 300 MILLIGRAM, Q3D
     Route: 048
     Dates: start: 20151231
  42. LISINOPRIL. [Concomitant]
     Active Substance: LISINOPRIL
     Dosage: 2.5 MILLIGRAM, TID
     Route: 048
     Dates: start: 20161110
  43. LETROZOLE. [Suspect]
     Active Substance: LETROZOLE
     Indication: BREAST CANCER METASTATIC
     Dosage: 2.5 MILLIGRAM, QD
     Route: 048
     Dates: start: 201507, end: 20170427
  44. ACYCLOVIR                          /00587301/ [Concomitant]
     Active Substance: ACYCLOVIR
     Dosage: 5 PERCENT
     Route: 061
     Dates: start: 20161213, end: 20161218
  45. BENZYLPENICILLIN [Concomitant]
     Active Substance: PENICILLIN G
     Dosage: 1.2 GRAM, QID
     Route: 042
     Dates: start: 20180912, end: 20180915
  46. CIPROFLOXACIN. [Concomitant]
     Active Substance: CIPROFLOXACIN
     Dosage: 750 MILLIGRAM
     Route: 048
     Dates: start: 20190205
  47. DEXAMETHASONE. [Concomitant]
     Active Substance: DEXAMETHASONE
     Dosage: 8 MILLIGRAM, BID
     Route: 048
     Dates: start: 20151008, end: 20151020
  48. FLUCLOXACILLIN [Concomitant]
     Active Substance: FLUCLOXACILLIN
     Indication: PYREXIA
     Dosage: 500 MILLIGRAM, QID
     Route: 048
     Dates: start: 20180915, end: 20180921
  49. MORPHINE SULPHATE [Concomitant]
     Active Substance: MORPHINE SULFATE
     Dosage: 40 MILLIGRAM
     Route: 048
     Dates: start: 20150516

REACTIONS (3)
  - Sepsis [Recovered/Resolved]
  - Lower respiratory tract infection [Recovered/Resolved]
  - Diarrhoea [Recovered/Resolved]

NARRATIVE: CASE EVENT DATE: 20170112
